FAERS Safety Report 5016405-4 (Version None)
Quarter: 2006Q2

REPORT INFORMATION
  Report Type: 
  Country: None (occurrence: None)
  Receive Date: 20060531
  Receipt Date: 20060531
  Transmission Date: 20061013
  Serious: Yes (Other)
  Sender: FDA-Public Use
  Company Number: None

PATIENT
  Age: 7 Year
  Sex: Male
  Weight: 23.587 kg

DRUGS (2)
  1. ZOLOFT [Suspect]
     Indication: ANXIETY
     Dosage: 25MG    EVERY MORNING   PO
     Route: 048
     Dates: start: 20060214, end: 20060223
  2. ZOLOFT [Suspect]
     Indication: TIC
     Dosage: 25MG    EVERY MORNING   PO
     Route: 048
     Dates: start: 20060214, end: 20060223

REACTIONS (5)
  - CRYING [None]
  - HOMICIDAL IDEATION [None]
  - MORBID THOUGHTS [None]
  - SUICIDAL IDEATION [None]
  - THINKING ABNORMAL [None]
